FAERS Safety Report 25363246 (Version 1)
Quarter: 2025Q2

REPORT INFORMATION
  Report Type: Spontaneous
  Country: KR (occurrence: KR)
  Receive Date: 20250527
  Receipt Date: 20250527
  Transmission Date: 20250717
  Serious: Yes (Death, Other)
  Sender: MALLINCKRODT
  Company Number: KR-MALLINCKRODT-MNK202503177

PATIENT
  Age: 1 Day
  Weight: 1 kg

DRUGS (2)
  1. NITRIC OXIDE [Suspect]
     Active Substance: NITRIC OXIDE
     Indication: Newborn persistent pulmonary hypertension
     Route: 055
     Dates: start: 20250514, end: 202505
  2. NITRIC OXIDE [Suspect]
     Active Substance: NITRIC OXIDE
     Route: 055
     Dates: start: 202505, end: 20250515

REACTIONS (4)
  - Death [Fatal]
  - Bradycardia neonatal [Unknown]
  - Neonatal hypoxia [Unknown]
  - Product use issue [Unknown]

NARRATIVE: CASE EVENT DATE: 20250514
